FAERS Safety Report 24376339 (Version 3)
Quarter: 2024Q4

REPORT INFORMATION
  Report Type: Spontaneous
  Country: RO (occurrence: RO)
  Receive Date: 20240930
  Receipt Date: 20241202
  Transmission Date: 20250115
  Serious: Yes (Hospitalization, Other)
  Sender: AUROBINDO
  Company Number: RO-FMX-PCT-09-24-LIT

PATIENT
  Age: 62 Year
  Sex: Female

DRUGS (46)
  1. LEFLUNOMIDE [Suspect]
     Active Substance: LEFLUNOMIDE
     Indication: Rheumatoid arthritis
     Dosage: 20 MILLIGRAM
     Route: 065
  2. OLANZAPINE [Suspect]
     Active Substance: OLANZAPINE
     Indication: Anhedonia
     Dosage: 5 MILLIGRAM
     Route: 065
  3. OLANZAPINE [Suspect]
     Active Substance: OLANZAPINE
     Indication: Dizziness
  4. OLANZAPINE [Suspect]
     Active Substance: OLANZAPINE
     Indication: Headache
  5. OLANZAPINE [Suspect]
     Active Substance: OLANZAPINE
     Indication: Anxiety
  6. OLANZAPINE [Suspect]
     Active Substance: OLANZAPINE
     Indication: Depression
  7. VORTIOXETINE [Suspect]
     Active Substance: VORTIOXETINE
     Indication: Anhedonia
     Dosage: 20 MILLIGRAM
     Route: 065
  8. VORTIOXETINE [Suspect]
     Active Substance: VORTIOXETINE
     Indication: Dizziness
  9. VORTIOXETINE [Suspect]
     Active Substance: VORTIOXETINE
     Indication: Headache
  10. VORTIOXETINE [Suspect]
     Active Substance: VORTIOXETINE
     Indication: Anxiety
  11. VORTIOXETINE [Suspect]
     Active Substance: VORTIOXETINE
     Indication: Depression
  12. VORTIOXETINE [Suspect]
     Active Substance: VORTIOXETINE
     Indication: Mental disorder
  13. MIRTAZAPINE [Suspect]
     Active Substance: MIRTAZAPINE
     Indication: Anxiety
     Dosage: 15 MILLIGRAM
     Route: 065
  14. MIRTAZAPINE [Suspect]
     Active Substance: MIRTAZAPINE
     Indication: Depression
     Dosage: 30 MILLIGRAM
     Route: 065
  15. MIRTAZAPINE [Suspect]
     Active Substance: MIRTAZAPINE
     Indication: Headache
  16. MIRTAZAPINE [Suspect]
     Active Substance: MIRTAZAPINE
     Indication: Dizziness
  17. MIRTAZAPINE [Suspect]
     Active Substance: MIRTAZAPINE
     Indication: Anhedonia
  18. MIRTAZAPINE [Suspect]
     Active Substance: MIRTAZAPINE
     Indication: Mental disorder
  19. AMISULPRIDE [Suspect]
     Active Substance: AMISULPRIDE
     Indication: Depression
     Dosage: 100 MILLIGRAM
     Route: 065
  20. AMISULPRIDE [Suspect]
     Active Substance: AMISULPRIDE
     Indication: Headache
  21. AMISULPRIDE [Suspect]
     Active Substance: AMISULPRIDE
     Indication: Dizziness
  22. AMISULPRIDE [Suspect]
     Active Substance: AMISULPRIDE
     Indication: Anhedonia
  23. AMISULPRIDE [Suspect]
     Active Substance: AMISULPRIDE
     Indication: Anxiety
  24. AMISULPRIDE [Suspect]
     Active Substance: AMISULPRIDE
     Indication: Mental disorder
  25. ALPRAZOLAM [Suspect]
     Active Substance: ALPRAZOLAM
     Indication: Anxiety
     Dosage: 1 MILLIGRAM
     Route: 065
  26. ALPRAZOLAM [Suspect]
     Active Substance: ALPRAZOLAM
     Indication: Anhedonia
  27. ALPRAZOLAM [Suspect]
     Active Substance: ALPRAZOLAM
     Indication: Headache
  28. ALPRAZOLAM [Suspect]
     Active Substance: ALPRAZOLAM
     Indication: Depression
  29. ALPRAZOLAM [Suspect]
     Active Substance: ALPRAZOLAM
     Indication: Dizziness
  30. ALPRAZOLAM [Suspect]
     Active Substance: ALPRAZOLAM
     Indication: Mental disorder
  31. VALPROIC ACID [Suspect]
     Active Substance: VALPROIC ACID
     Indication: Dizziness
     Dosage: 600 MILLIGRAM
     Route: 065
  32. VALPROIC ACID [Suspect]
     Active Substance: VALPROIC ACID
     Indication: Anxiety
  33. VALPROIC ACID [Suspect]
     Active Substance: VALPROIC ACID
     Indication: Anhedonia
  34. VALPROIC ACID [Suspect]
     Active Substance: VALPROIC ACID
     Indication: Headache
  35. VALPROIC ACID [Suspect]
     Active Substance: VALPROIC ACID
     Indication: Depression
  36. VALPROIC ACID [Suspect]
     Active Substance: VALPROIC ACID
     Indication: Mental disorder
  37. PIRACETAM [Suspect]
     Active Substance: PIRACETAM
     Indication: Dizziness
     Dosage: 800 MILLIGRAM
     Route: 065
  38. PIRACETAM [Suspect]
     Active Substance: PIRACETAM
     Indication: Headache
  39. PIRACETAM [Suspect]
     Active Substance: PIRACETAM
     Indication: Neck pain
  40. PIRACETAM [Suspect]
     Active Substance: PIRACETAM
     Indication: Anhedonia
  41. PIRACETAM [Suspect]
     Active Substance: PIRACETAM
     Indication: Depression
  42. PIRACETAM [Suspect]
     Active Substance: PIRACETAM
     Indication: Anxiety
  43. PIRACETAM [Suspect]
     Active Substance: PIRACETAM
     Indication: Mental disorder
  44. ACECLOFENAC [Concomitant]
     Active Substance: ACECLOFENAC
     Indication: Rheumatoid arthritis
     Dosage: 200 MILLIGRAM
     Route: 065
  45. SULFASALAZINE [Concomitant]
     Active Substance: SULFASALAZINE
     Indication: Rheumatoid arthritis
     Dosage: 3000 MILLIGRAM
     Route: 065
  46. SULFASALAZINE [Concomitant]
     Active Substance: SULFASALAZINE
     Dosage: 2000 MILLIGRAM
     Route: 065

REACTIONS (2)
  - Depression [Recovering/Resolving]
  - Drug ineffective [Recovered/Resolved]
